FAERS Safety Report 16835922 (Version 1)
Quarter: 2019Q3

REPORT INFORMATION
  Report Type: Spontaneous
  Country: CA (occurrence: CA)
  Receive Date: 20190920
  Receipt Date: 20190920
  Transmission Date: 20191005
  Serious: Yes (Other)
  Sender: FDA-Public Use
  Company Number: CA-TEVA-2019-CA-1110159

PATIENT
  Age: 50 Year
  Sex: Female

DRUGS (28)
  1. CEPHALEXIN. [Suspect]
     Active Substance: CEPHALEXIN
     Indication: PRODUCT USED FOR UNKNOWN INDICATION
     Route: 065
  2. CLINDAMYCIN HYDROCHLORIDE. [Suspect]
     Active Substance: CLINDAMYCIN HYDROCHLORIDE
     Indication: PRODUCT USED FOR UNKNOWN INDICATION
     Route: 065
  3. BIAXIN [Suspect]
     Active Substance: CLARITHROMYCIN
     Route: 042
  4. CIPRO[CIPROFLOXACIN] [Concomitant]
  5. CIPROFLOXACIN. [Suspect]
     Active Substance: CIPROFLOXACIN
     Indication: PRODUCT USED FOR UNKNOWN INDICATION
     Route: 065
  6. LOSARTAN. [Suspect]
     Active Substance: LOSARTAN
     Indication: PRODUCT USED FOR UNKNOWN INDICATION
     Route: 065
  7. METHOTREXATE. [Suspect]
     Active Substance: METHOTREXATE
     Indication: PRODUCT USED FOR UNKNOWN INDICATION
     Route: 058
  8. HYDRALAZINE HYDROCHLORIDE. [Suspect]
     Active Substance: HYDRALAZINE HYDROCHLORIDE
     Indication: PRODUCT USED FOR UNKNOWN INDICATION
     Route: 065
  9. PANTOPRAZOLE [Suspect]
     Active Substance: PANTOPRAZOLE
     Indication: PRODUCT USED FOR UNKNOWN INDICATION
     Route: 065
  10. METOPROLOL TARTRATE. [Suspect]
     Active Substance: METOPROLOL TARTRATE
     Indication: PRODUCT USED FOR UNKNOWN INDICATION
     Route: 065
  11. HYDROXYCHLOROQUINE SULFATE. [Suspect]
     Active Substance: HYDROXYCHLOROQUINE SULFATE
     Indication: PRODUCT USED FOR UNKNOWN INDICATION
     Route: 065
  12. CODEINE [Suspect]
     Active Substance: CODEINE
     Indication: PRODUCT USED FOR UNKNOWN INDICATION
     Route: 065
  13. ENALAPRIL [Suspect]
     Active Substance: ENALAPRIL
     Indication: PRODUCT USED FOR UNKNOWN INDICATION
     Route: 065
  14. LEVAQUIN [Suspect]
     Active Substance: LEVOFLOXACIN
     Indication: PRODUCT USED FOR UNKNOWN INDICATION
     Route: 065
  15. HCTZ [Suspect]
     Active Substance: HYDROCHLOROTHIAZIDE
     Indication: PRODUCT USED FOR UNKNOWN INDICATION
     Route: 065
  16. PENICILLIN G [Suspect]
     Active Substance: PENICILLIN G
     Indication: PRODUCT USED FOR UNKNOWN INDICATION
     Route: 065
  17. ARAVA [Suspect]
     Active Substance: LEFLUNOMIDE
     Indication: PRODUCT USED FOR UNKNOWN INDICATION
     Route: 065
  18. BIAXIN [Suspect]
     Active Substance: CLARITHROMYCIN
     Indication: PRODUCT USED FOR UNKNOWN INDICATION
     Route: 065
  19. FOSAMAX [Suspect]
     Active Substance: ALENDRONATE SODIUM
     Indication: PRODUCT USED FOR UNKNOWN INDICATION
     Route: 065
  20. PARIET [Suspect]
     Active Substance: RABEPRAZOLE SODIUM
     Indication: PRODUCT USED FOR UNKNOWN INDICATION
     Route: 065
  21. PREDNISONE. [Concomitant]
     Active Substance: PREDNISONE
     Dosage: 8.5 MILLIGRAM DAILY;
     Route: 065
  22. MOXIFLOXACIN HYDROCHLORIDE. [Suspect]
     Active Substance: MOXIFLOXACIN HYDROCHLORIDE
     Indication: PRODUCT USED FOR UNKNOWN INDICATION
     Route: 065
  23. GOLD [Concomitant]
     Active Substance: GOLD
  24. HYDROXYCHLOROQUINE SULFATE. [Concomitant]
     Active Substance: HYDROXYCHLOROQUINE SULFATE
  25. CELEBREX [Suspect]
     Active Substance: CELECOXIB
     Indication: PRODUCT USED FOR UNKNOWN INDICATION
     Route: 065
  26. ENBREL [Suspect]
     Active Substance: ETANERCEPT
     Indication: PRODUCT USED FOR UNKNOWN INDICATION
     Route: 065
  27. ESOMEPRAZOLE. [Concomitant]
     Active Substance: ESOMEPRAZOLE MAGNESIUM
  28. IRON SUCROSE [Concomitant]
     Active Substance: IRON SUCROSE

REACTIONS (16)
  - Abdominal discomfort [Unknown]
  - Arthralgia [Unknown]
  - Drug hypersensitivity [Unknown]
  - Dyspnoea [Unknown]
  - Cough [Unknown]
  - Diarrhoea [Unknown]
  - Hypertension [Unknown]
  - Cardiac failure congestive [Unknown]
  - Hepatic steatosis [Unknown]
  - Rash [Unknown]
  - Abdominal pain upper [Unknown]
  - Gastric disorder [Unknown]
  - Loss of employment [Unknown]
  - Malaise [Unknown]
  - Nausea [Unknown]
  - Therapeutic product effect decreased [Unknown]
